FAERS Safety Report 9547431 (Version 2)
Quarter: 2013Q4

REPORT INFORMATION
  Report Type: Report from Study
  Country: US (occurrence: US)
  Receive Date: 20130924
  Receipt Date: 20131001
  Transmission Date: 20140711
  Serious: Yes (Other)
  Sender: FDA-Public Use
  Company Number: PHEH2013US019913

PATIENT
  Age: 28 Year
  Sex: Female

DRUGS (4)
  1. GILENYA [Suspect]
     Indication: MULTIPLE SCLEROSIS
     Dosage: 0.5 MG, QD
     Route: 048
     Dates: start: 20110927, end: 201304
  2. AMBIEN [Concomitant]
  3. ADDERALL [Concomitant]
  4. TRAZODONE [Concomitant]

REACTIONS (13)
  - Road traffic accident [Unknown]
  - Central nervous system lesion [Unknown]
  - Somnolence [Unknown]
  - Insomnia [Unknown]
  - Dysarthria [Unknown]
  - Autoimmune disorder [Unknown]
  - Fatigue [Unknown]
  - Muscle spasticity [Unknown]
  - Amnesia [Unknown]
  - Thermal burn [Unknown]
  - Arthropathy [Unknown]
  - Gait disturbance [Unknown]
  - Vision blurred [Unknown]
